FAERS Safety Report 9759623 (Version 1)
Quarter: 2013Q4

REPORT INFORMATION
  Report Type: Spontaneous
  Country: US (occurrence: US)
  Receive Date: 20131216
  Receipt Date: 20131216
  Transmission Date: 20140711
  Serious: No
  Sender: FDA-Public Use
  Company Number: US-GILEAD-2010-0028467

PATIENT
  Sex: Female
  Weight: 50.8 kg

DRUGS (13)
  1. LETAIRIS [Suspect]
     Indication: PULMONARY ARTERIAL HYPERTENSION
     Route: 048
     Dates: start: 20090514
  2. VERAPAMIL [Concomitant]
  3. PRILOSEC [Concomitant]
  4. MOTRIN [Concomitant]
  5. MAALOX [Concomitant]
  6. NEURONTIN [Concomitant]
  7. VICODINE [Concomitant]
  8. LAMICTAL [Concomitant]
  9. ASPIRIN [Concomitant]
  10. MULTIVITAMIN [Concomitant]
  11. FISH OIL [Concomitant]
  12. CALCIUM [Concomitant]
  13. HYDROCHLOROTHIAZIDE [Concomitant]

REACTIONS (3)
  - Sneezing [Unknown]
  - Rhinorrhoea [Unknown]
  - Respiratory tract congestion [Unknown]
